FAERS Safety Report 7954378-2 (Version None)
Quarter: 2011Q4

REPORT INFORMATION
  Report Type: 
  Country: None (occurrence: None)
  Receive Date: 20111202
  Receipt Date: 20111130
  Transmission Date: 20120403
  Serious: Yes (Other)
  Sender: FDA-Public Use
  Company Number: US-PFIZER INC-2011292740

PATIENT
  Sex: Female
  Weight: 63.946 kg

DRUGS (3)
  1. LYRICA [Suspect]
     Indication: PAIN IN EXTREMITY
     Dosage: 50 MG, 3X/DAY
     Route: 048
     Dates: start: 20110901, end: 20111001
  2. TRAMADOL [Concomitant]
     Dosage: UNK
  3. LYRICA [Suspect]
     Indication: BACK PAIN
     Dosage: 75 MG, 2X/DAY
     Route: 048
     Dates: start: 20111001

REACTIONS (2)
  - HYPERTENSION [None]
  - WEIGHT INCREASED [None]
